FAERS Safety Report 9600715 (Version 1)
Quarter: 2013Q4

REPORT INFORMATION
  Report Type: Spontaneous
  Country: US (occurrence: US)
  Receive Date: 20131004
  Receipt Date: 20131004
  Transmission Date: 20140711
  Serious: No
  Sender: FDA-Public Use
  Company Number: US-AMGEN-USASP2013036022

PATIENT
  Age: 49 Year
  Sex: Female
  Weight: 68.03 kg

DRUGS (8)
  1. ENBREL [Suspect]
     Indication: PRODUCT USED FOR UNKNOWN INDICATION
     Dosage: 50 MG, QWK
     Route: 058
  2. METHOTREXATE [Concomitant]
     Dosage: 250/10ML
  3. FOLIC ACID [Concomitant]
     Dosage: UNK
  4. GABAPENTIN [Concomitant]
     Dosage: 100 MG, UNK
  5. HYDROCODONE W/APAP                 /01554201/ [Concomitant]
     Dosage: 5-500MG, UNK
  6. VOLTAREN                           /00372301/ [Concomitant]
     Dosage: 50 MG, UNK
  7. LEUCOVORIN                         /00566701/ [Concomitant]
     Dosage: 350 MG, UNK
  8. CETIRIZIN [Concomitant]
     Dosage: 5 MG, UNK

REACTIONS (2)
  - Rash maculo-papular [Unknown]
  - Feeling hot [Unknown]
